FAERS Safety Report 12664910 (Version 2)
Quarter: 2016Q3

REPORT INFORMATION
  Report Type: Report from Study
  Country: US (occurrence: US)
  Receive Date: 20160818
  Receipt Date: 20160826
  Transmission Date: 20161109
  Serious: Yes (Death, Other)
  Sender: FDA-Public Use
  Company Number: US-EISAI MEDICAL RESEARCH-EC-2016-018765

PATIENT
  Age: 72 Year
  Sex: Male

DRUGS (2)
  1. AFINITOR [Concomitant]
     Active Substance: EVEROLIMUS
  2. LENVIMA [Suspect]
     Active Substance: LENVATINIB
     Indication: RENAL CELL CARCINOMA
     Route: 048
     Dates: start: 20160713, end: 201608

REACTIONS (5)
  - Dry mouth [Unknown]
  - Diarrhoea [Not Recovered/Not Resolved]
  - Renal failure [Unknown]
  - Death [Fatal]
  - Myalgia [Unknown]

NARRATIVE: CASE EVENT DATE: 201607
